FAERS Safety Report 10157916 (Version 1)
Quarter: 2014Q2

REPORT INFORMATION
  Report Type: Spontaneous
  Country: US (occurrence: US)
  Receive Date: 20140507
  Receipt Date: 20140507
  Transmission Date: 20141212
  Serious: Yes (Other)
  Sender: FDA-Public Use
  Company Number: US-BAYER-2014-066403

PATIENT
  Age: 25 Year
  Sex: Female

DRUGS (2)
  1. MIRENA [Suspect]
     Indication: CONTRACEPTION
     Dosage: 20 ?G/D, CONT
     Route: 015
     Dates: start: 201111, end: 201304
  2. MIRENA [Suspect]
     Indication: CONTRACEPTION
     Dosage: 20 ?G/D, CONT
     Route: 015
     Dates: start: 20140419, end: 20140428

REACTIONS (5)
  - Device dislocation [None]
  - Post procedural haemorrhage [Not Recovered/Not Resolved]
  - Abdominal pain lower [None]
  - Device expulsion [None]
  - Procedural pain [Not Recovered/Not Resolved]
